FAERS Safety Report 5089758-9 (Version None)
Quarter: 2006Q3

REPORT INFORMATION
  Report Type: 
  Country: None (occurrence: None)
  Receive Date: 20060731
  Receipt Date: 20060227
  Transmission Date: 20061208
  Serious: Yes (Hospitalization)
  Sender: FDA-Public Use
  Company Number: US200602005476

PATIENT
  Age: 79 Year
  Sex: Female

DRUGS (3)
  1. FORTEO [Suspect]
     Indication: OSTEOPOROSIS
     Dates: start: 20051101, end: 20060101
  2. FORTEO [Suspect]
     Indication: OSTEOPOROSIS
     Dates: start: 20041101, end: 20061001
  3. FORTEO [Concomitant]

REACTIONS (1)
  - ARTHRALGIA [None]
